FAERS Safety Report 24221510 (Version 2)
Quarter: 2024Q3

REPORT INFORMATION
  Report Type: Spontaneous
  Country: CH (occurrence: CH)
  Receive Date: 20240819
  Receipt Date: 20240823
  Transmission Date: 20241016
  Serious: Yes (Hospitalization, Other)
  Sender: BLUEPRINT MEDICINES
  Company Number: None

PATIENT
  Age: 71 Year
  Sex: Male

DRUGS (4)
  1. AVAPRITINIB [Suspect]
     Active Substance: AVAPRITINIB
     Indication: Advanced systemic mastocytosis
     Route: 048
     Dates: start: 20230930, end: 20231116
  2. AVAPRITINIB [Suspect]
     Active Substance: AVAPRITINIB
     Route: 048
     Dates: start: 20240101, end: 202406
  3. AVAPRITINIB [Suspect]
     Active Substance: AVAPRITINIB
     Route: 065
     Dates: start: 202407
  4. CYCLOSPORINE [Suspect]
     Active Substance: CYCLOSPORINE
     Indication: Graft versus host disease
     Route: 048
     Dates: start: 202303

REACTIONS (9)
  - Toxic leukoencephalopathy [Unknown]
  - Acute myeloid leukaemia [Unknown]
  - Condition aggravated [Unknown]
  - Cognitive disorder [Unknown]
  - Psychomotor retardation [Unknown]
  - Speech disorder [Unknown]
  - Memory impairment [Unknown]
  - Aphasia [Unknown]
  - Anaemia [Unknown]

NARRATIVE: CASE EVENT DATE: 20240124
